APPROVED DRUG PRODUCT: ALTAVERA
Active Ingredient: ETHINYL ESTRADIOL; LEVONORGESTREL
Strength: 0.03MG;0.15MG
Dosage Form/Route: TABLET;ORAL-28
Application: A079102 | Product #001 | TE Code: AB
Applicant: XIROMED PHARMA ESPANA SL
Approved: Aug 3, 2010 | RLD: No | RS: No | Type: RX